FAERS Safety Report 19460901 (Version 1)
Quarter: 2021Q2

REPORT INFORMATION
  Report Type: Spontaneous
  Country: US (occurrence: US)
  Receive Date: 20210625
  Receipt Date: 20210625
  Transmission Date: 20210717
  Serious: No
  Sender: FDA-Public Use
  Company Number: US-HIKMA PHARMACEUTICALS USA INC.-US-H14001-20-03838

PATIENT
  Sex: Female

DRUGS (5)
  1. TRIAZOLAM. [Suspect]
     Active Substance: TRIAZOLAM
     Route: 065
  2. TRIAZOLAM. [Suspect]
     Active Substance: TRIAZOLAM
     Route: 065
  3. TRIAZOLAM. [Suspect]
     Active Substance: TRIAZOLAM
     Route: 065
  4. BELSOMRA [Concomitant]
     Active Substance: SUVOREXANT
     Indication: SLEEP DISORDER THERAPY
     Route: 065
  5. TRIAZOLAM. [Suspect]
     Active Substance: TRIAZOLAM
     Indication: SLEEP DISORDER THERAPY
     Route: 065

REACTIONS (6)
  - Mental disorder [Unknown]
  - Drug ineffective [Unknown]
  - Apathy [Unknown]
  - Sleep apnoea syndrome [Unknown]
  - Sedation [Unknown]
  - Thyroid disorder [Unknown]
